FAERS Safety Report 23813958 (Version 1)
Quarter: 2024Q2

REPORT INFORMATION
  Report Type: Spontaneous
  Country: US (occurrence: US)
  Receive Date: 20240503
  Receipt Date: 20240503
  Transmission Date: 20240716
  Serious: No
  Sender: FDA-Public Use
  Company Number: US-GALDERMA-US2024001663

PATIENT

DRUGS (12)
  1. PROACTIV MD ADAPALENE ACNE TREATMENT [Suspect]
     Active Substance: ADAPALENE
     Indication: Acne
     Dosage: 1 DOSAGE FORM, QD, APPLIED THE WHOLE FACE, MIGHT BE LIKE A DIME SIZE
     Route: 061
     Dates: start: 2023
  2. PROACTIV MD ADAPALENE ACNE TREATMENT [Suspect]
     Active Substance: ADAPALENE
     Indication: Erythema
     Dosage: 1 DOSAGE FORM, QOD, APPLIED THE WHOLE FACE, MIGHT BE LIKE A DIME SIZE
     Route: 061
     Dates: start: 2023
  3. PROACTIV MD ADAPALENE ACNE TREATMENT [Suspect]
     Active Substance: ADAPALENE
     Indication: Dermatitis
  4. Proactiv MD Ultra Gentle Cleanser [Concomitant]
     Indication: Acne
     Dosage: 1 DOSAGE FORM, APPLIED WHOLE FACE, EVERY NIGHT AND MOST MORNINGS
     Route: 061
     Dates: start: 2023
  5. Proactiv MD Ultra Gentle Cleanser [Concomitant]
     Indication: Erythema
  6. Proactiv MD Ultra Gentle Cleanser [Concomitant]
     Indication: Dermatitis
  7. Proactiv MD Ultra Hydrating Moisturizer [Concomitant]
     Indication: Acne
     Dosage: 1 DOSAGE FORM, APPLIED WHOLE FACE, EVERY NIGHT AND MOST MORNINGS
     Route: 061
     Dates: start: 2023
  8. Proactiv MD Ultra Hydrating Moisturizer [Concomitant]
     Indication: Erythema
  9. Proactiv MD Ultra Hydrating Moisturizer [Concomitant]
     Indication: Dermatitis
  10. Proactiv Zits Happen Patches [Concomitant]
     Indication: Acne
     Dosage: 1 DOSAGE FORM, APPLIED WHOLE FACE, EVERY NIGHT AND MOST MORNINGS
     Route: 061
     Dates: start: 2023
  11. Proactiv Zits Happen Patches [Concomitant]
     Indication: Erythema
  12. Proactiv Zits Happen Patches [Concomitant]
     Indication: Dermatitis

REACTIONS (3)
  - Drug ineffective [Unknown]
  - Inappropriate schedule of product administration [Recovered/Resolved]
  - Underdose [Recovered/Resolved]

NARRATIVE: CASE EVENT DATE: 20230101
